FAERS Safety Report 16030416 (Version 1)
Quarter: 2019Q1

REPORT INFORMATION
  Report Type: Spontaneous
  Country: US (occurrence: US)
  Receive Date: 20190304
  Receipt Date: 20190304
  Transmission Date: 20190418
  Serious: Yes (Death, Other)
  Sender: FDA-Public Use
  Company Number: US-BAYER-2019-044419

PATIENT
  Sex: Female

DRUGS (3)
  1. LORAZEPAM. [Suspect]
     Active Substance: LORAZEPAM
  2. MIRALAX [Suspect]
     Active Substance: POLYETHYLENE GLYCOL 3350
     Dosage: UNK
  3. ZANTAC [Suspect]
     Active Substance: RANITIDINE HYDROCHLORIDE
     Dosage: UNK

REACTIONS (3)
  - Hydranencephaly [Fatal]
  - Kidney infection [Fatal]
  - Diabetes insipidus [Fatal]
